FAERS Safety Report 15566237 (Version 1)
Quarter: 2018Q4

REPORT INFORMATION
  Report Type: Spontaneous
  Country: SI (occurrence: SI)
  Receive Date: 20181030
  Receipt Date: 20181030
  Transmission Date: 20190205
  Serious: Yes (Other)
  Sender: FDA-Public Use
  Company Number: SI-BAYER-2018-197292

PATIENT
  Age: 71 Year
  Sex: Male

DRUGS (1)
  1. STIVARGA [Suspect]
     Active Substance: REGORAFENIB
     Indication: RECTAL CANCER METASTATIC
     Dosage: DAILY DOSE, 80 MG
     Route: 048
     Dates: start: 20180322, end: 20180614

REACTIONS (9)
  - C-reactive protein increased [None]
  - Hepatic function abnormal [None]
  - Rectal cancer metastatic [None]
  - Blood lactate dehydrogenase increased [None]
  - Off label use [None]
  - Palmar-plantar erythrodysaesthesia syndrome [None]
  - Metastases to liver [None]
  - Hepatic enzyme increased [None]
  - Carcinoembryonic antigen increased [None]

NARRATIVE: CASE EVENT DATE: 2018
